FAERS Safety Report 4438846-6 (Version None)
Quarter: 2004Q3

REPORT INFORMATION
  Report Type: 
  Country: None (occurrence: None)
  Receive Date: 20040901
  Receipt Date: 20040826
  Transmission Date: 20050211
  Serious: Yes (Hospitalization)
  Sender: FDA-Public Use
  Company Number: 200413205FR

PATIENT
  Age: 69 Year
  Sex: Male
  Weight: 69 kg

DRUGS (4)
  1. ARAVA [Suspect]
     Indication: RHEUMATOID ARTHRITIS
     Route: 048
     Dates: start: 20010926, end: 20040226
  2. ENBREL [Suspect]
     Indication: RHEUMATOID ARTHRITIS
     Route: 042
     Dates: start: 20040120, end: 20040629
  3. VASTAREL [Concomitant]
     Route: 048
  4. OGAST [Concomitant]
     Route: 048

REACTIONS (7)
  - ANTINUCLEAR ANTIBODY POSITIVE [None]
  - DIFFUSE LARGE B-CELL LYMPHOMA STAGE II [None]
  - HAEMOGLOBIN DECREASED [None]
  - LUNG NEOPLASM [None]
  - NON-HODGKIN'S LYMPHOMA [None]
  - RED BLOOD CELL COUNT DECREASED [None]
  - WHITE BLOOD CELL COUNT INCREASED [None]
